FAERS Safety Report 17749387 (Version 4)
Quarter: 2020Q2

REPORT INFORMATION
  Report Type: Report from Study
  Country: None (occurrence: FR)
  Receive Date: 20200505
  Receipt Date: 20200629
  Transmission Date: 20200714
  Serious: Yes (Other)
  Sender: FDA-Public Use
  Company Number: FR-ABBVIE-17P-056-2126678-00

PATIENT
  Sex: Female
  Weight: 61 kg

DRUGS (3)
  1. REYATAZ [Suspect]
     Active Substance: ATAZANAVIR SULFATE
     Indication: HIV INFECTION
     Dosage: 1 COURSE STARTED PRIOR TO CONCEPTION- EARLIEST EXPOSRE FIRST TRIMESTER
     Route: 065
     Dates: start: 20121019, end: 20130403
  2. NORVIR [Suspect]
     Active Substance: RITONAVIR
     Indication: HIV INFECTION
     Dosage: 1 COURSE STARTED PRIOR TO CONCEPTION- EARLIEST EXPOSURE FIRST TRIMESTER
     Route: 048
     Dates: start: 20121019, end: 20130403
  3. TRUVADA [Suspect]
     Active Substance: EMTRICITABINE\TENOFOVIR DISOPROXIL FUMARATE
     Indication: HIV INFECTION
     Dosage: 1 COURSE STARTED PRIOR TO CONCEPTION- EARLIEST EXPOSRE FIRST TRIMESTER
     Route: 050
     Dates: start: 20121019, end: 20130403

REACTIONS (2)
  - Maternal exposure during pregnancy [Unknown]
  - Abortion induced [Unknown]

NARRATIVE: CASE EVENT DATE: 20130402
